FAERS Safety Report 12211389 (Version 4)
Quarter: 2016Q3

REPORT INFORMATION
  Report Type: Spontaneous
  Country: BR (occurrence: BR)
  Receive Date: 20160325
  Receipt Date: 20160713
  Transmission Date: 20161109
  Serious: Yes (Other)
  Sender: FDA-Public Use
  Company Number: BR-ASTRAZENECA-2016SE32134

PATIENT
  Age: 61 Year
  Sex: Female

DRUGS (2)
  1. ATACAND [Suspect]
     Active Substance: CANDESARTAN CILEXETIL
     Indication: BLOOD PRESSURE ABNORMAL
     Route: 048
  2. ATACAND [Suspect]
     Active Substance: CANDESARTAN CILEXETIL
     Indication: BLOOD PRESSURE ABNORMAL
     Route: 048
     Dates: start: 2012

REACTIONS (8)
  - Duodenitis [Recovered/Resolved]
  - Blood pressure increased [Recovered/Resolved]
  - Cough [Not Recovered/Not Resolved]
  - Helicobacter infection [Recovered/Resolved]
  - Erosive oesophagitis [Recovered/Resolved]
  - Drug dose omission [Recovered/Resolved]
  - Gastrooesophageal reflux disease [Recovered/Resolved]
  - Gastritis [Recovered/Resolved]

NARRATIVE: CASE EVENT DATE: 2016
